FAERS Safety Report 11573105 (Version 3)
Quarter: 2015Q4

REPORT INFORMATION
  Report Type: Spontaneous
  Country: US (occurrence: US)
  Receive Date: 20150916
  Receipt Date: 20151104
  Transmission Date: 20160304
  Serious: No
  Sender: FDA-Public Use
  Company Number: US-ELI_LILLY_AND_COMPANY-US200910006368

PATIENT
  Age: 85 Year
  Sex: Female

DRUGS (2)
  1. FORTEO [Suspect]
     Active Substance: TERIPARATIDE
     Dosage: 20 UG, DAILY (1/D)
  2. FORTEO [Suspect]
     Active Substance: TERIPARATIDE
     Indication: OSTEOPOROSIS
     Dosage: 20 D/F, DAILY (1/D)
     Dates: start: 200910

REACTIONS (11)
  - Contusion [Unknown]
  - Constipation [Not Recovered/Not Resolved]
  - Pain in extremity [Unknown]
  - Head injury [Unknown]
  - Insomnia [Unknown]
  - Asthenia [Unknown]
  - Arthralgia [Unknown]
  - Dizziness [Not Recovered/Not Resolved]
  - Muscular weakness [Unknown]
  - Fall [Recovered/Resolved]
  - Nausea [Unknown]

NARRATIVE: CASE EVENT DATE: 20110113
